FAERS Safety Report 6478236-8 (Version None)
Quarter: 2009Q4

REPORT INFORMATION
  Report Type: 
  Country: None (occurrence: None)
  Receive Date: 20091207
  Receipt Date: 20091207
  Transmission Date: 20100525
  Serious: Yes (Hospitalization, Other)
  Sender: FDA-Public Use
  Company Number: US-PFIZER INC-2009276035

PATIENT
  Sex: Male

DRUGS (3)
  1. CHANTIX [Suspect]
     Indication: SMOKING CESSATION THERAPY
     Dates: start: 20080101, end: 20090924
  2. ULTRAM [Concomitant]
  3. SAW PALMETTO [Concomitant]

REACTIONS (3)
  - DEPRESSION [None]
  - PSYCHIATRIC SYMPTOM [None]
  - RASH ERYTHEMATOUS [None]
